FAERS Safety Report 21746638 (Version 2)
Quarter: 2023Q2

REPORT INFORMATION
  Report Type: Report from Study
  Country: IN (occurrence: IN)
  Receive Date: 20221219
  Receipt Date: 20230407
  Transmission Date: 20230722
  Serious: Yes (Other)
  Sender: FDA-Public Use
  Company Number: IN-002147023-NVSC2022IN290537

PATIENT
  Age: 67 Year
  Sex: Female

DRUGS (1)
  1. RIBOCICLIB [Suspect]
     Active Substance: RIBOCICLIB
     Indication: Breast cancer metastatic
     Dosage: 600 MG, QD
     Route: 065
     Dates: start: 20220829, end: 202303

REACTIONS (5)
  - Osteonecrosis [Unknown]
  - Osteonecrosis of jaw [Unknown]
  - Bone lesion [Unknown]
  - Pain in extremity [Unknown]
  - Weight decreased [Unknown]
